FAERS Safety Report 20467854 (Version 1)
Quarter: 2022Q1

REPORT INFORMATION
  Report Type: Spontaneous
  Country: ES (occurrence: ES)
  Receive Date: 20220214
  Receipt Date: 20220214
  Transmission Date: 20220423
  Serious: Yes (Hospitalization)
  Sender: FDA-Public Use
  Company Number: ES-AEMPS-1100330

PATIENT
  Age: 79 Year
  Sex: Female

DRUGS (6)
  1. DOXAZOSIN [Suspect]
     Active Substance: DOXAZOSIN MESYLATE
     Indication: Hypertension
     Dosage: UNK (2.0 MG C/24 H)
     Route: 048
     Dates: start: 20200809, end: 20200810
  2. HYDROCHLOROTHIAZIDE [Suspect]
     Active Substance: HYDROCHLOROTHIAZIDE
     Indication: Hypertension
     Dosage: UNK (12.5 MG C/24 H)
     Route: 048
     Dates: start: 20200808, end: 20200810
  3. ACETAMINOPHEN [Concomitant]
     Active Substance: ACETAMINOPHEN
     Indication: Pain
     Dosage: UNK (40 TABLETS) (1.0 G C/72 HOURS)
     Route: 048
     Dates: start: 20100409
  4. LEVOTHYROXINE SODIUM [Concomitant]
     Active Substance: LEVOTHYROXINE SODIUM
     Indication: Hypothyroidism
     Dosage: UNK (100 TABLETS) (88.0 MCG A-DE)
     Route: 048
     Dates: start: 20150603
  5. OMEPRAZOLE [Concomitant]
     Active Substance: OMEPRAZOLE
     Indication: Hypertension
     Dosage: UNK (56 CAPSULES (BOTTLE)) (20.0 MG A-DE)
     Route: 048
     Dates: start: 20100409
  6. SIMVASTATIN [Concomitant]
     Active Substance: SIMVASTATIN
     Indication: Hypercholesterolaemia
     Dosage: UNK (28 TABLETS) (10.0 MG CE)
     Route: 048
     Dates: start: 20120801

REACTIONS (2)
  - Hyponatraemia [Recovered/Resolved]
  - Orthostatic hypotension [Recovered/Resolved]

NARRATIVE: CASE EVENT DATE: 20200810
